FAERS Safety Report 6308588-0 (Version None)
Quarter: 2009Q3

REPORT INFORMATION
  Report Type: 
  Country: None (occurrence: None)
  Receive Date: 20090813
  Receipt Date: 20090807
  Transmission Date: 20100115
  Serious: Yes (Hospitalization)
  Sender: FDA-Public Use
  Company Number: PHHO2009BE04226

PATIENT
  Sex: Female
  Weight: 62.5 kg

DRUGS (4)
  1. CGS 20267 T30748+ [Suspect]
     Indication: BREAST CANCER
     Dosage: 2.5 MG, QD
     Route: 048
     Dates: start: 20040602
  2. ZOMETA [Suspect]
     Indication: BREAST CANCER
     Dosage: 4 MG, EVERY 6 MONTHS
     Route: 042
     Dates: start: 20040602
  3. CALCIUM [Concomitant]
  4. VITAMIN D [Concomitant]

REACTIONS (10)
  - ANGINA PECTORIS [None]
  - BUNDLE BRANCH BLOCK LEFT [None]
  - CARDIAC FAILURE [None]
  - CHEST PAIN [None]
  - DYSPNOEA EXERTIONAL [None]
  - FATIGUE [None]
  - MITRAL VALVE DISEASE [None]
  - PULMONARY HYPERTENSION [None]
  - PULMONARY OEDEMA [None]
  - SWELLING [None]
